FAERS Safety Report 8405868-X (Version None)
Quarter: 2012Q2

REPORT INFORMATION
  Report Type: 
  Country: None (occurrence: None)
  Receive Date: 20120529
  Receipt Date: 20050822
  Transmission Date: 20120825
  Serious: Yes (Hospitalization)
  Sender: FDA-Public Use
  Company Number: 15691-USA-05-1970

PATIENT
  Age: 65 Year
  Sex: Male

DRUGS (9)
  1. SPIRONOLACTONE [Concomitant]
  2. ASPIRIN [Concomitant]
  3. TOLVAPTAN (TOLVAPTAN(V4.1)) 30MG [Suspect]
     Indication: CARDIAC FAILURE CONGESTIVE
     Dosage: 30 MG, QD, ORAL
     Route: 048
     Dates: start: 20050314
  4. CARVEDILOL [Concomitant]
  5. ATORVASTATIN [Concomitant]
  6. INSULIN ILETIN I NPH (INSULIN INJECTION, ISOPHANE) [Concomitant]
  7. FUROSEMIDE [Concomitant]
  8. ENALAPRIL MALEATE [Concomitant]
  9. CLONAZEPAM [Concomitant]

REACTIONS (2)
  - CARDIAC FAILURE CONGESTIVE [None]
  - CONDITION AGGRAVATED [None]
